FAERS Safety Report 7685572-6 (Version None)
Quarter: 2011Q3

REPORT INFORMATION
  Report Type: 
  Country: None (occurrence: None)
  Receive Date: 20110815
  Receipt Date: 20110815
  Transmission Date: 20111222
  Serious: Yes (Hospitalization)
  Sender: FDA-Public Use
  Company Number: None

PATIENT
  Age: 69 Year
  Sex: Female
  Weight: 40.8237 kg

DRUGS (2)
  1. GOODY POWDERS [Suspect]
     Indication: PAIN
     Dosage: 1 PK 1-2/WK ORALLY
     Route: 048
  2. GOODY POWDERS [Suspect]
     Indication: HEADACHE
     Dosage: 1 PK 1-2/WK ORALLY
     Route: 048

REACTIONS (1)
  - GASTRIC ULCER [None]
